FAERS Safety Report 7714929-X (Version None)
Quarter: 2011Q3

REPORT INFORMATION
  Report Type: 
  Country: None (occurrence: None)
  Receive Date: 20110829
  Receipt Date: 20110330
  Transmission Date: 20111222
  Serious: No
  Sender: FDA-Public Use
  Company Number: US-GLAXOSMITHKLINE-A0921697A

PATIENT
  Age: 66 Year
  Sex: Male
  Weight: 90 kg

DRUGS (7)
  1. FISH OIL [Concomitant]
  2. ZOVIRAX [Suspect]
     Indication: ORAL HERPES
     Route: 061
     Dates: start: 20110210, end: 20110101
  3. SIMAVASTATIN [Concomitant]
  4. NORVASC [Concomitant]
  5. CARDIZEM CD [Concomitant]
  6. ZESTRIL [Concomitant]
  7. VITAMIN B-12 [Concomitant]

REACTIONS (2)
  - PRODUCT QUALITY ISSUE [None]
  - DRUG INEFFECTIVE [None]
